FAERS Safety Report 7023243-X (Version None)
Quarter: 2010Q3

REPORT INFORMATION
  Report Type: 
  Country: None (occurrence: None)
  Receive Date: 20100930
  Receipt Date: 20100923
  Transmission Date: 20110219
  Serious: Yes (Other)
  Sender: FDA-Public Use
  Company Number: US-MYLANLABS-2010S1015200

PATIENT
  Age: 40 Year
  Sex: Female
  Weight: 71.67 kg

DRUGS (1)
  1. ESTRADIOL TRANSDERMAL SYSTEM, USP [Suspect]
     Indication: HORMONE REPLACEMENT THERAPY
     Dosage: QW
     Route: 062
     Dates: start: 20100501, end: 20100601

REACTIONS (5)
  - DRUG INEFFECTIVE [None]
  - HERNIA [None]
  - HORMONE LEVEL ABNORMAL [None]
  - HOT FLUSH [None]
  - MOUTH ULCERATION [None]
